FAERS Safety Report 15207145 (Version 2)
Quarter: 2020Q2

REPORT INFORMATION
  Report Type: Report from Study
  Country: None (occurrence: TN)
  Receive Date: 20180727
  Receipt Date: 20200612
  Transmission Date: 20200713
  Serious: Yes (Hospitalization, Other)
  Sender: FDA-Public Use
  Company Number: TN-ABBVIE-18K-160-2426168-00

PATIENT
  Age: 23 Year
  Sex: Female

DRUGS (12)
  1. BUSCOPAN [Suspect]
     Active Substance: BUTYLSCOPOLAMINE BROMIDE
     Indication: CROHN^S DISEASE
     Route: 065
  2. VITAPRED [Concomitant]
     Active Substance: PREDNISOLONE
     Indication: PRODUCT USED FOR UNKNOWN INDICATION
     Route: 048
  3. HUMIRA [Suspect]
     Active Substance: ADALIMUMAB
     Dosage: 80 MG LOADING DOSE
     Route: 058
     Dates: start: 20180704, end: 20180704
  4. HUMIRA [Suspect]
     Active Substance: ADALIMUMAB
     Route: 058
     Dates: start: 20180718, end: 201912
  5. BUSCOPAN [Suspect]
     Active Substance: BUTYLSCOPOLAMINE BROMIDE
     Indication: DIARRHOEA HAEMORRHAGIC
  6. HUMIRA [Suspect]
     Active Substance: ADALIMUMAB
     Indication: CROHN^S DISEASE
     Dosage: 160 MG LOADING DOSE
     Route: 058
     Dates: start: 20180619, end: 20180619
  7. SOLUPRED (PREDNISOLONE) [Suspect]
     Active Substance: PREDNISOLONE
     Indication: CROHN^S DISEASE
     Dosage: DOSE WAS TAPERED DOWN PROGRESSIVELY WHEN PATIENT STARTED HUMIRA
     Route: 048
     Dates: start: 201612, end: 20180717
  8. BUSCOPAN [Suspect]
     Active Substance: BUTYLSCOPOLAMINE BROMIDE
     Indication: ABDOMINAL PAIN
  9. IMUREL [Concomitant]
     Active Substance: AZATHIOPRINE SODIUM
     Indication: CROHN^S DISEASE
     Route: 048
  10. PRONAL (SITOSTEROL) [Suspect]
     Active Substance: SITOSTEROLS
     Indication: CROHN^S DISEASE
     Route: 065
  11. PRONAL (SITOSTEROL) [Suspect]
     Active Substance: SITOSTEROLS
     Indication: DIARRHOEA HAEMORRHAGIC
  12. PRONAL (SITOSTEROL) [Suspect]
     Active Substance: SITOSTEROLS
     Indication: ABDOMINAL PAIN

REACTIONS (9)
  - Fatigue [Recovering/Resolving]
  - Crohn^s disease [Recovering/Resolving]
  - Abdominal pain [Recovering/Resolving]
  - Diarrhoea haemorrhagic [Recovering/Resolving]
  - Abdominal distension [Recovering/Resolving]
  - Dizziness [Recovering/Resolving]
  - Drug ineffective [Not Recovered/Not Resolved]
  - Pancreatitis [Recovering/Resolving]
  - Abdominal pain upper [Recovered/Resolved]

NARRATIVE: CASE EVENT DATE: 20180626
